FAERS Safety Report 4875029-X (Version None)
Quarter: 2006Q1

REPORT INFORMATION
  Report Type: 
  Country: None (occurrence: None)
  Receive Date: 20060104
  Receipt Date: 20051220
  Transmission Date: 20060701
  Serious: Yes (Other)
  Sender: FDA-Public Use
  Company Number: 220505

PATIENT
  Age: 64 Year
  Sex: Male

DRUGS (18)
  1. RITUXAN [Suspect]
     Indication: LYMPHOMA
     Dosage: SEE IMAGE
     Route: 042
     Dates: start: 20040921, end: 20040928
  2. RITUXAN [Suspect]
     Indication: LYMPHOMA
     Dosage: SEE IMAGE
     Route: 042
     Dates: start: 20041005, end: 20041109
  3. IFOSFAMIDE [Suspect]
     Indication: LYMPHOMA
     Dosage: SEE IMAGE
     Route: 042
     Dates: start: 20041006, end: 20041010
  4. IFOSFAMIDE [Suspect]
     Indication: LYMPHOMA
     Dosage: SEE IMAGE
     Route: 042
     Dates: start: 20041103, end: 20041107
  5. PARAPLATIN [Suspect]
     Indication: LYMPHOMA
     Dosage: SEE IMAGE
     Route: 042
     Dates: start: 20041006, end: 20041006
  6. PARAPLATIN [Suspect]
     Indication: LYMPHOMA
     Dosage: SEE IMAGE
     Route: 042
     Dates: start: 20041103, end: 20041103
  7. VEPESID [Suspect]
     Indication: LYMPHOMA
     Dosage: 150 MG, QD, INTRAVENOUS
     Route: 042
     Dates: start: 20041006, end: 20041010
  8. VEPESID [Suspect]
     Indication: LYMPHOMA
     Dosage: 150 MG, QD, INTRAVENOUS
     Route: 042
     Dates: start: 20041103, end: 20041107
  9. BRUFEN (IBUPROFEN) [Concomitant]
  10. POLARAMINE [Concomitant]
  11. GASLON N (IRSOGLADINE MALEATE) [Concomitant]
  12. FAMOTIDINE [Concomitant]
  13. LEVOTHYROXINE SODIUM [Concomitant]
  14. URSO (URSODEOXYCHLOIC ACID) [Concomitant]
  15. ALLOPURINOL [Concomitant]
  16. FOIPAN (CAMOSTAT) [Concomitant]
  17. LOXONIN (LOXOPROFEN SODIUM) [Concomitant]
  18. PURSENNID (SENNOSIDES) [Concomitant]

REACTIONS (7)
  - ANAEMIA [None]
  - ANOREXIA [None]
  - BLOOD POTASSIUM INCREASED [None]
  - FATIGUE [None]
  - HYPOAESTHESIA [None]
  - PLATELET COUNT DECREASED [None]
  - WHITE BLOOD CELL COUNT DECREASED [None]
